FAERS Safety Report 8104152-1 (Version None)
Quarter: 2012Q1

REPORT INFORMATION
  Report Type: 
  Country: None (occurrence: None)
  Receive Date: 20120201
  Receipt Date: 20120125
  Transmission Date: 20120608
  Serious: Yes (Hospitalization, Other)
  Sender: FDA-Public Use
  Company Number: US-BRISTOL-MYERS SQUIBB COMPANY-16369589

PATIENT
  Sex: Female

DRUGS (3)
  1. PREDNISONE TAB [Concomitant]
  2. NULOJIX [Suspect]
     Indication: RENAL TRANSPLANT
     Dates: start: 20120105, end: 20120119
  3. MYFORTIC [Concomitant]

REACTIONS (2)
  - SMALL INTESTINAL PERFORATION [None]
  - INTESTINAL OBSTRUCTION [None]
